FAERS Safety Report 8051019-3 (Version None)
Quarter: 2012Q1

REPORT INFORMATION
  Report Type: 
  Country: None (occurrence: None)
  Receive Date: 20120117
  Receipt Date: 20120111
  Transmission Date: 20120608
  Serious: Yes (Hospitalization)
  Sender: FDA-Public Use
  Company Number: PHHY2011JP96097

PATIENT
  Age: 51 Year
  Sex: Female

DRUGS (6)
  1. TACROLIMUS [Concomitant]
     Dosage: 10-15 NG/ML
  2. CYCLOSPORINE [Suspect]
     Indication: APLASTIC ANAEMIA
     Dates: start: 20080501
  3. FLUDARABINE PHOSPHATE [Concomitant]
     Dosage: 30 MG/M^2 FOR 6 DAYS (DAY -7 TO -2)
  4. CYCLOPHOSPHAMIDE [Concomitant]
     Dosage: 50 MG/KG, FOR 2 DAYS (DAY -6 AND -5)
  5. MYCOPHENOLATE MOFETIL [Concomitant]
     Dosage: 30 MG/KG, UNK
     Route: 048
  6. IMMUNE GLOBULIN (HUMAN) [Concomitant]
     Dosage: 1 MG/KG, UNK

REACTIONS (15)
  - PANCYTOPENIA [None]
  - RED BLOOD CELL COUNT DECREASED [None]
  - DEEP VEIN THROMBOSIS [None]
  - NEUTROPHIL COUNT DECREASED [None]
  - BLOOD LACTATE DEHYDROGENASE INCREASED [None]
  - LYMPHOCYTE COUNT INCREASED [None]
  - HAEMOGLOBIN DECREASED [None]
  - OEDEMA PERIPHERAL [None]
  - FIBRIN D DIMER INCREASED [None]
  - NEUTROPENIA [None]
  - CYTOMEGALOVIRUS INFECTION [None]
  - HAEMATOCRIT DECREASED [None]
  - TRANSAMINASES INCREASED [None]
  - RETICULOCYTE COUNT DECREASED [None]
  - WHITE BLOOD CELL COUNT DECREASED [None]
